FAERS Safety Report 7484056-8 (Version None)
Quarter: 2011Q2

REPORT INFORMATION
  Report Type: 
  Country: None (occurrence: None)
  Receive Date: 20110517
  Receipt Date: 20110513
  Transmission Date: 20111010
  Serious: Yes (Life-Threatening)
  Sender: FDA-Public Use
  Company Number: GB-ASTRAZENECA-2011SE28721

PATIENT
  Age: 64 Year
  Sex: Male

DRUGS (15)
  1. CELECOXIB [Suspect]
     Indication: PROSTATE CANCER
     Route: 048
     Dates: start: 20081110, end: 20091101
  2. E45 [Concomitant]
     Dates: start: 20080505
  3. OXYCODONE HCL [Concomitant]
     Route: 048
  4. MOVIPREP [Concomitant]
     Route: 048
  5. PREDNISOLONE [Concomitant]
     Route: 048
  6. BICALUTAMIDE [Concomitant]
     Route: 048
  7. ZOLADEX [Suspect]
     Route: 058
     Dates: start: 20081028, end: 20100727
  8. FUROSEMIDE [Concomitant]
     Route: 048
  9. ZOPICLONE [Concomitant]
     Dates: start: 20050922
  10. ACETAMINOPHEN [Concomitant]
     Route: 048
  11. SPIRONOLACTONE [Concomitant]
     Route: 048
  12. SILDENAFIL CITRATE [Concomitant]
     Dates: start: 20070907
  13. OXYCONTIN [Concomitant]
     Route: 048
  14. LIDOCAINE [Concomitant]
  15. FORTISIP [Concomitant]
     Route: 048

REACTIONS (1)
  - DEEP VEIN THROMBOSIS [None]
